FAERS Safety Report 9337332 (Version 1)
Quarter: 2013Q2

REPORT INFORMATION
  Report Type: Spontaneous
  Country: CA (occurrence: CA)
  Receive Date: 20130607
  Receipt Date: 20130607
  Transmission Date: 20140414
  Serious: Yes (Hospitalization)
  Sender: FDA-Public Use
  Company Number: CA-GLAXOSMITHKLINE-A1025471A

PATIENT
  Age: 60 Year
  Sex: Female
  Weight: 36.4 kg

DRUGS (7)
  1. ADVAIR [Suspect]
     Indication: CHRONIC OBSTRUCTIVE PULMONARY DISEASE
     Dosage: 2PUFF TWICE PER DAY
     Route: 055
     Dates: start: 2012
  2. SPIRIVA [Concomitant]
  3. BRICANYL [Concomitant]
  4. LOPERAMIDE [Concomitant]
     Dosage: 2TAB FOUR TIMES PER DAY
  5. TYLENOL [Concomitant]
  6. LORAZEPAM [Concomitant]
  7. OXYGEN [Concomitant]

REACTIONS (4)
  - Candida infection [Not Recovered/Not Resolved]
  - Gingival bleeding [Unknown]
  - Pneumonia [Unknown]
  - Medical device complication [Unknown]
